FAERS Safety Report 13253785 (Version 1)
Quarter: 2017Q1

REPORT INFORMATION
  Report Type: Spontaneous
  Country: US (occurrence: US)
  Receive Date: 20170220
  Receipt Date: 20170220
  Transmission Date: 20170428
  Serious: Yes (Other)
  Sender: FDA-Public Use
  Company Number: US-ASTRAZENECA-2017SE16996

PATIENT
  Age: 59 Year
  Sex: Male

DRUGS (4)
  1. CARBIDOPA-LEVO DOPA [Concomitant]
     Dosage: 100/1000MG
  2. CARBIDOPA-LEVO DOPA [Concomitant]
     Dosage: 150/500MG TWICE DAILY
  3. SEROQUEL [Suspect]
     Active Substance: QUETIAPINE FUMARATE
     Route: 048
  4. L DOPA [Concomitant]
     Active Substance: LEVODOPA

REACTIONS (4)
  - Clavicle fracture [Unknown]
  - Tardive dyskinesia [Unknown]
  - Neuroleptic malignant syndrome [Unknown]
  - Seizure [Unknown]
